FAERS Safety Report 4889515-X (Version None)
Quarter: 2006Q1

REPORT INFORMATION
  Report Type: 
  Country: None (occurrence: None)
  Receive Date: 20060120
  Receipt Date: 20060109
  Transmission Date: 20060701
  Serious: Yes (Hospitalization)
  Sender: FDA-Public Use
  Company Number: 2006007723

PATIENT
  Age: 74 Year
  Sex: Female

DRUGS (9)
  1. ATARAX [Suspect]
     Indication: ILL-DEFINED DISORDER
     Dosage: 50 MG, ORAL
     Route: 048
     Dates: end: 20051120
  2. TRAMADOL HCL [Suspect]
     Indication: ILL-DEFINED DISORDER
     Dosage: 2 DF, ORAL
     Route: 048
     Dates: end: 20051122
  3. CELIPROLOL HYDROCHLORIDE (CELIPROLOL HYDROCHLORIDE) [Suspect]
     Indication: ILL-DEFINED DISORDER
     Dosage: 100 MG, ORAL
     Route: 048
  4. PAROXETINE (PAROXETINE) [Suspect]
     Indication: ILL-DEFINED DISORDER
     Dosage: 20 MG, ORAL
     Route: 048
     Dates: end: 20051118
  5. ZOPICLONE (ZOPICLONE) [Suspect]
     Indication: ILL-DEFINED DISORDER
     Dosage: 7.5 MG, ORAL
     Route: 048
  6. FUROSEMIDE [Suspect]
     Indication: ILL-DEFINED DISORDER
     Dosage: 20 M, ORAL
     Route: 048
     Dates: end: 20051113
  7. LEVODOPA W/BENSERAZIDE/ (BENSAERAZIDE, LEVODOPA) [Concomitant]
  8. PIRIBEDIL (PIRIBEDIL) [Concomitant]
  9. IRBESARTAN [Concomitant]

REACTIONS (2)
  - DISEASE RECURRENCE [None]
  - PEMPHIGOID [None]
